FAERS Safety Report 12405218 (Version 1)
Quarter: 2016Q2

REPORT INFORMATION
  Report Type: Spontaneous
  Country: US (occurrence: US)
  Receive Date: 20160525
  Receipt Date: 20160525
  Transmission Date: 20160815
  Serious: No
  Sender: FDA-Public Use
  Company Number: US-MDT-ADR-2015-02323

PATIENT
  Age: 31 Year
  Sex: Male

DRUGS (7)
  1. TEGRETOL [Suspect]
     Active Substance: CARBAMAZEPINE
  2. MIRALAX [Suspect]
     Active Substance: POLYETHYLENE GLYCOL 3350
  3. MILK OF MAGNESIA [Suspect]
     Active Substance: MAGNESIUM HYDROXIDE
  4. VENTOLIN [Suspect]
     Active Substance: ALBUTEROL SULFATE
     Route: 055
  5. LIORESAL [Suspect]
     Active Substance: BACLOFEN
     Dosage: 381.6 MCG/DAY
     Route: 037
  6. SENOKOT [Suspect]
     Active Substance: SENNOSIDES
  7. UNKNOWN [Suspect]
     Active Substance: UNSPECIFIED INGREDIENT
     Indication: CONSTIPATION

REACTIONS (5)
  - Haematochezia [Unknown]
  - Abdominal pain [Unknown]
  - Malaise [Unknown]
  - Chromaturia [Recovered/Resolved]
  - Faeces hard [Unknown]

NARRATIVE: CASE EVENT DATE: 20150413
